FAERS Safety Report 26164755 (Version 1)
Quarter: 2025Q4

REPORT INFORMATION
  Report Type: Spontaneous
  Country: US (occurrence: US)
  Receive Date: 20251216
  Receipt Date: 20251216
  Transmission Date: 20260118
  Serious: No
  Sender: BLUEPRINT MEDICINES
  Company Number: US-Blueprint Medicines Corporation-2025-AER-02710

PATIENT
  Age: 49 Year
  Sex: Female

DRUGS (2)
  1. AYVAKIT [Suspect]
     Active Substance: AVAPRITINIB
     Indication: Indolent systemic mastocytosis
     Dosage: ALTERNATING 100MG AND 50MG EVERY OTHER DAY
     Route: 065
  2. AYVAKIT [Suspect]
     Active Substance: AVAPRITINIB
     Dosage: ALTERNATING 100MG AND 50MG EVERY OTHER DAY
     Route: 065

REACTIONS (1)
  - Off label use [Unknown]
